FAERS Safety Report 9178238 (Version 2)
Quarter: 2013Q2

REPORT INFORMATION
  Report Type: Spontaneous
  Country: JP (occurrence: JP)
  Receive Date: 20130321
  Receipt Date: 20130612
  Transmission Date: 20140414
  Serious: Yes (Other)
  Sender: FDA-Public Use
  Company Number: JP-ELI_LILLY_AND_COMPANY-JP201303003649

PATIENT
  Age: 84 Year
  Sex: Female

DRUGS (1)
  1. FORTEO [Suspect]
     Dosage: UNK
     Route: 058
     Dates: start: 201210

REACTIONS (5)
  - Fracture [Unknown]
  - Compression fracture [Unknown]
  - Decreased appetite [Not Recovered/Not Resolved]
  - Abdominal pain lower [Unknown]
  - Drug ineffective [Unknown]
